FAERS Safety Report 5082607-4 (Version None)
Quarter: 2006Q3

REPORT INFORMATION
  Report Type: 
  Country: None (occurrence: None)
  Receive Date: 20060811
  Receipt Date: 20060803
  Transmission Date: 20061208
  Serious: Yes (Death, Hospitalization)
  Sender: FDA-Public Use
  Company Number: 2006-08-0209

PATIENT
  Age: 82 Year
  Sex: Male

DRUGS (3)
  1. TEMODAR [Suspect]
     Indication: METASTATIC MALIGNANT MELANOMA
     Dosage: 150 MG/M2D1-5 ORAL
     Route: 048
     Dates: start: 20060623, end: 20060722
  2. SORAFENIB TABLETS [Suspect]
     Indication: METASTATIC MALIGNANT MELANOMA
     Dosage: 400 MG BID ORAL
     Route: 048
     Dates: start: 20060616, end: 20060722
  3. RADIATION THERAPY NO DOSE FORM [Suspect]
     Indication: METASTASES TO CENTRAL NERVOUS SYSTEM
     Dosage: UNKNOWN X-RAY THERAPY

REACTIONS (5)
  - ASTHENIA [None]
  - DEHYDRATION [None]
  - DIVERTICULITIS [None]
  - GASTROINTESTINAL PERFORATION [None]
  - ORAL INTAKE REDUCED [None]
